FAERS Safety Report 7618767 (Version 5)
Quarter: 2012Q4

REPORT INFORMATION
  Report Type: 
  Country: US (occurrence: US)
  Receive Date: 20101006
  Receipt Date: 20120904
  Transmission Date: 20130627
  Serious: Yes (Death, Other)
  Sender: FDA-Public Use
  Company Number: US-ROCHE-729246

PATIENT
  Sex: Female

DRUGS (3)
  1. AVASTIN [Suspect]
     Indication: RECURRENT CANCER
     Dosage: DOSE ADMINISTERED ON DAY 1AND DAY 15 OF EVERY 28 DAY CYCLE.
     Route: 065
  2. CARBOPLATIN [Suspect]
     Indication: RECURRENT CANCER
     Dosage: DOSE: AUC 5 ADMINISTERED ON DAY 1 OF EACH 28 DAY CYCLE
     Route: 065
  3. DOXORUBICIN HYDROCHLORIDE [Suspect]
     Indication: RECURRENT CANCER
     Dosage: DOSE 30 MG/M2 GIVEN ON DAY 1 OF EACH 28 DAY CYCLE
     Route: 065

REACTIONS (28)
  - Pulmonary embolism [Fatal]
  - Thrombocytopenia [Unknown]
  - Anaemia [Unknown]
  - Neutropenia [Unknown]
  - Leukopenia [Unknown]
  - Abdominal pain [Unknown]
  - Chronic obstructive pulmonary disease [Unknown]
  - Dizziness [Unknown]
  - Fatigue [Unknown]
  - Palmar-plantar erythrodysaesthesia syndrome [Unknown]
  - Headache [Unknown]
  - Hydronephrosis [Unknown]
  - Hypertension [Unknown]
  - Hypokalaemia [Unknown]
  - Hyponatraemia [Unknown]
  - Mouth ulceration [Unknown]
  - Nausea [Unknown]
  - Proteinuria [Unknown]
  - Sinus headache [Unknown]
  - Stomatitis [Unknown]
  - Syncope [Unknown]
  - Vomiting [Unknown]
  - Device malfunction [Unknown]
  - Deep vein thrombosis [Unknown]
  - Back pain [Unknown]
  - Infection [Unknown]
  - Small intestinal perforation [Unknown]
  - Stent malfunction [None]
